FAERS Safety Report 7633231-8 (Version None)
Quarter: 2011Q3

REPORT INFORMATION
  Report Type: 
  Country: None (occurrence: None)
  Receive Date: 20110725
  Receipt Date: 20110712
  Transmission Date: 20111222
  Serious: Yes (Other)
  Sender: FDA-Public Use
  Company Number: GB-ROCHE-789820

PATIENT
  Sex: Male
  Weight: 79.9 kg

DRUGS (8)
  1. FENOBRAT [Concomitant]
     Route: 048
  2. EPIRUBICIN [Suspect]
     Indication: GASTRIC CANCER
     Dosage: DATE OF MOST RECENT DOSE: 23 FEB 2011
     Route: 042
     Dates: start: 20110202
  3. ADCAL D3 [Concomitant]
     Route: 048
     Dates: start: 20101125
  4. CISPLATIN [Suspect]
     Indication: GASTRIC CANCER
     Dosage: DATE OF MOST RECENT DOSE: 02 FEB 2011
     Route: 042
     Dates: start: 20110202
  5. CAPECITABINE [Suspect]
     Indication: GASTRIC CANCER
     Dosage: DATE OF MOST RECENT DOSE: 23 FEB 2011
     Route: 048
     Dates: start: 20110202
  6. LOSARTAN POTASSIUM [Concomitant]
     Route: 048
  7. BEVACIZUMAB [Suspect]
     Indication: GASTRIC CANCER
     Dosage: DATE OF MOST RECENT DOSE: 23 FEB 2011
     Route: 042
     Dates: start: 20110202
  8. FERROUS SULFATE TAB [Concomitant]
     Route: 048
     Dates: start: 20101203

REACTIONS (1)
  - PERICARDITIS [None]
